FAERS Safety Report 6907115-4 (Version None)
Quarter: 2010Q3

REPORT INFORMATION
  Report Type: 
  Country: None (occurrence: None)
  Receive Date: 20100804
  Receipt Date: 20090223
  Transmission Date: 20110219
  Serious: Yes (Other)
  Sender: FDA-Public Use
  Company Number: US-PFIZER INC-2006019382

PATIENT
  Sex: Male
  Weight: 108.86 kg

DRUGS (3)
  1. NARDIL [Suspect]
     Indication: DEPRESSION
     Dosage: 6 EVERY 1 DAYS
     Route: 065
  2. LITHIUM [Concomitant]
     Route: 065
  3. CLONOPIN [Concomitant]
     Route: 065

REACTIONS (9)
  - ABNORMAL DREAMS [None]
  - ANXIETY [None]
  - DEPRESSION [None]
  - DIARRHOEA [None]
  - DRUG INEFFECTIVE [None]
  - FEELING ABNORMAL [None]
  - MENTAL IMPAIRMENT [None]
  - TREMOR [None]
  - WEIGHT INCREASED [None]
